FAERS Safety Report 5044233-2 (Version None)
Quarter: 2006Q2

REPORT INFORMATION
  Report Type: 
  Country: None (occurrence: None)
  Receive Date: 20060601
  Receipt Date: 20060328
  Transmission Date: 20061013
  Serious: No
  Sender: FDA-Public Use
  Company Number: US200603006735

PATIENT
  Age: 54 Year
  Sex: Female

DRUGS (7)
  1. CYMBALTA [Suspect]
     Indication: DEPRESSION
     Dosage: 60 MG
     Dates: start: 20060101
  2. HYDROCHLOROTHIAZIDE [Concomitant]
  3. PROPRANOLOL [Concomitant]
  4. PROMETHAZINE [Concomitant]
  5. ISOSORBIDE MONONITRATE [Concomitant]
  6. HYDROCODONE BITARTRATE + ACETAMINOPHEN [Concomitant]
  7. NEURONTIN [Concomitant]

REACTIONS (6)
  - BRONCHITIS [None]
  - FEELING ABNORMAL [None]
  - INFLUENZA [None]
  - NASAL CONGESTION [None]
  - PAIN IN EXTREMITY [None]
  - PNEUMONIA [None]
